FAERS Safety Report 23667283 (Version 3)
Quarter: 2025Q2

REPORT INFORMATION
  Report Type: Spontaneous
  Country: CA (occurrence: CA)
  Receive Date: 20240325
  Receipt Date: 20250418
  Transmission Date: 20250717
  Serious: Yes (Death, Life-Threatening, Hospitalization, Disabling, Other)
  Sender: Haleon PLC
  Company Number: CA-002147023-NVSC2024CA054138

PATIENT
  Age: 44 Year
  Sex: Female
  Weight: 97 kg

DRUGS (653)
  1. DICLOFENAC POTASSIUM [Suspect]
     Active Substance: DICLOFENAC POTASSIUM
     Indication: Product used for unknown indication
     Route: 048
  2. DICLOFENAC POTASSIUM [Suspect]
     Active Substance: DICLOFENAC POTASSIUM
     Route: 058
  3. DICLOFENAC POTASSIUM [Suspect]
     Active Substance: DICLOFENAC POTASSIUM
     Route: 047
  4. DICLOFENAC POTASSIUM [Suspect]
     Active Substance: DICLOFENAC POTASSIUM
     Route: 048
  5. DICLOFENAC POTASSIUM [Suspect]
     Active Substance: DICLOFENAC POTASSIUM
     Route: 065
  6. DICLOFENAC POTASSIUM [Suspect]
     Active Substance: DICLOFENAC POTASSIUM
     Route: 065
  7. DICLOFENAC POTASSIUM [Suspect]
     Active Substance: DICLOFENAC POTASSIUM
     Route: 065
  8. DICLOFENAC POTASSIUM [Suspect]
     Active Substance: DICLOFENAC POTASSIUM
     Route: 065
  9. DICLOFENAC POTASSIUM [Suspect]
     Active Substance: DICLOFENAC POTASSIUM
     Route: 065
  10. DICLOFENAC POTASSIUM [Suspect]
     Active Substance: DICLOFENAC POTASSIUM
     Route: 058
  11. FLUMETHASONE PIVALATE [Suspect]
     Active Substance: FLUMETHASONE PIVALATE
     Indication: Rheumatoid arthritis
     Route: 003
  12. FLUMETHASONE PIVALATE [Suspect]
     Active Substance: FLUMETHASONE PIVALATE
     Indication: Product used for unknown indication
     Route: 065
  13. FLUMETHASONE PIVALATE [Suspect]
     Active Substance: FLUMETHASONE PIVALATE
     Route: 065
  14. CALCIUM GLUBIONATE [Suspect]
     Active Substance: CALCIUM GLUBIONATE
     Indication: Product used for unknown indication
     Route: 016
  15. CALCIUM GLUBIONATE [Suspect]
     Active Substance: CALCIUM GLUBIONATE
     Route: 065
  16. CALCIUM GLUBIONATE [Suspect]
     Active Substance: CALCIUM GLUBIONATE
     Route: 065
  17. ALENDRONIC ACID [Suspect]
     Active Substance: ALENDRONIC ACID
     Indication: Rheumatoid arthritis
     Route: 065
  18. ALENDRONIC ACID [Suspect]
     Active Substance: ALENDRONIC ACID
     Indication: Product used for unknown indication
     Route: 048
  19. ALENDRONIC ACID [Suspect]
     Active Substance: ALENDRONIC ACID
     Route: 065
  20. ALENDRONIC ACID [Suspect]
     Active Substance: ALENDRONIC ACID
     Route: 016
  21. ALENDRONIC ACID [Suspect]
     Active Substance: ALENDRONIC ACID
     Route: 065
  22. ALENDRONIC ACID [Suspect]
     Active Substance: ALENDRONIC ACID
     Route: 065
  23. ALENDRONIC ACID [Suspect]
     Active Substance: ALENDRONIC ACID
     Route: 048
  24. ALENDRONIC ACID [Suspect]
     Active Substance: ALENDRONIC ACID
     Route: 048
  25. ALENDRONIC ACID [Suspect]
     Active Substance: ALENDRONIC ACID
     Route: 065
  26. ALENDRONIC ACID [Suspect]
     Active Substance: ALENDRONIC ACID
     Route: 065
  27. GOLIMUMAB [Suspect]
     Active Substance: GOLIMUMAB
     Indication: Rheumatoid arthritis
     Route: 058
  28. GOLIMUMAB [Suspect]
     Active Substance: GOLIMUMAB
     Indication: Product used for unknown indication
     Route: 065
  29. METHOTREXATE SODIUM [Suspect]
     Active Substance: METHOTREXATE SODIUM
     Indication: Rheumatoid arthritis
     Dosage: 20 MG, QD
     Route: 048
  30. METHOTREXATE SODIUM [Suspect]
     Active Substance: METHOTREXATE SODIUM
     Indication: Product used for unknown indication
     Route: 048
  31. METHOTREXATE SODIUM [Suspect]
     Active Substance: METHOTREXATE SODIUM
     Route: 058
  32. METHOTREXATE SODIUM [Suspect]
     Active Substance: METHOTREXATE SODIUM
     Route: 048
  33. METHOTREXATE SODIUM [Suspect]
     Active Substance: METHOTREXATE SODIUM
     Dosage: 20 MG, WE (20 MG, QW)
     Route: 048
  34. METHOTREXATE SODIUM [Suspect]
     Active Substance: METHOTREXATE SODIUM
     Dosage: 25 MG, QD
     Route: 048
  35. METHOTREXATE SODIUM [Suspect]
     Active Substance: METHOTREXATE SODIUM
     Route: 048
  36. METHOTREXATE SODIUM [Suspect]
     Active Substance: METHOTREXATE SODIUM
     Dosage: 25 MG, WE (25 MG, QW)
     Route: 048
  37. METHOTREXATE SODIUM [Suspect]
     Active Substance: METHOTREXATE SODIUM
     Route: 048
  38. METHOTREXATE SODIUM [Suspect]
     Active Substance: METHOTREXATE SODIUM
     Dosage: 25 MG
     Route: 013
  39. METHOTREXATE SODIUM [Suspect]
     Active Substance: METHOTREXATE SODIUM
     Route: 048
  40. METHOTREXATE SODIUM [Suspect]
     Active Substance: METHOTREXATE SODIUM
     Route: 048
  41. METHOTREXATE SODIUM [Suspect]
     Active Substance: METHOTREXATE SODIUM
     Dosage: 15 MG, QD
     Route: 048
  42. METHOTREXATE SODIUM [Suspect]
     Active Substance: METHOTREXATE SODIUM
     Route: 065
  43. METHOTREXATE SODIUM [Suspect]
     Active Substance: METHOTREXATE SODIUM
     Route: 065
  44. METHOTREXATE SODIUM [Suspect]
     Active Substance: METHOTREXATE SODIUM
     Dosage: 2 G, QD
     Route: 048
  45. METHOTREXATE SODIUM [Suspect]
     Active Substance: METHOTREXATE SODIUM
     Dosage: 25 MG, WE (25 MG, QW)
     Route: 048
  46. METHOTREXATE SODIUM [Suspect]
     Active Substance: METHOTREXATE SODIUM
     Dosage: 20 MG
     Route: 048
  47. METHOTREXATE SODIUM [Suspect]
     Active Substance: METHOTREXATE SODIUM
     Dosage: 2 G, WE (2 G, QW)
     Route: 048
  48. METHOTREXATE SODIUM [Suspect]
     Active Substance: METHOTREXATE SODIUM
     Dosage: 20 MG, WE (20 MG, QW)
     Route: 048
  49. NAPROXEN SODIUM [Suspect]
     Active Substance: NAPROXEN SODIUM
     Indication: Rheumatoid arthritis
     Dosage: 1000 MG, QD (500 MG, BID)
     Route: 065
  50. NAPROXEN SODIUM [Suspect]
     Active Substance: NAPROXEN SODIUM
     Indication: Product used for unknown indication
     Route: 065
  51. MYCOPHENOLATE MOFETIL [Suspect]
     Active Substance: MYCOPHENOLATE MOFETIL
     Indication: Product used for unknown indication
     Route: 065
  52. ENTYVIO [Suspect]
     Active Substance: VEDOLIZUMAB
     Indication: Product used for unknown indication
     Route: 065
  53. DILTIAZEM HYDROCHLORIDE [Suspect]
     Active Substance: DILTIAZEM HYDROCHLORIDE
     Indication: Product used for unknown indication
     Route: 042
  54. DILTIAZEM HYDROCHLORIDE [Suspect]
     Active Substance: DILTIAZEM HYDROCHLORIDE
     Route: 065
  55. LYRICA [Suspect]
     Active Substance: PREGABALIN
     Indication: Product used for unknown indication
     Route: 065
  56. REMICADE [Suspect]
     Active Substance: INFLIXIMAB
     Indication: Product used for unknown indication
     Route: 065
  57. REMICADE [Suspect]
     Active Substance: INFLIXIMAB
     Indication: Rheumatoid arthritis
     Route: 042
  58. REMICADE [Suspect]
     Active Substance: INFLIXIMAB
     Route: 042
  59. ISOPROPYL ALCOHOL [Suspect]
     Active Substance: ISOPROPYL ALCOHOL
     Indication: Product used for unknown indication
     Route: 061
  60. ISOPROPYL ALCOHOL [Suspect]
     Active Substance: ISOPROPYL ALCOHOL
     Route: 061
  61. PREDNISOLONE [Suspect]
     Active Substance: PREDNISOLONE
     Indication: Product used for unknown indication
     Route: 065
  62. PREDNISOLONE [Suspect]
     Active Substance: PREDNISOLONE
     Route: 048
  63. PREDNISOLONE [Suspect]
     Active Substance: PREDNISOLONE
     Route: 048
  64. PREDNISOLONE [Suspect]
     Active Substance: PREDNISOLONE
     Route: 065
  65. DICLOFENAC [Suspect]
     Active Substance: DICLOFENAC
     Indication: Product used for unknown indication
     Route: 058
  66. PREDNISONE [Suspect]
     Active Substance: PREDNISONE
     Indication: Psoriatic arthropathy
     Route: 065
  67. PREDNISONE [Suspect]
     Active Substance: PREDNISONE
     Indication: Rheumatoid arthritis
     Route: 065
  68. PREDNISONE [Suspect]
     Active Substance: PREDNISONE
     Indication: Condition aggravated
     Route: 065
  69. PREDNISONE [Suspect]
     Active Substance: PREDNISONE
     Indication: Product used for unknown indication
     Route: 048
  70. PREDNISONE [Suspect]
     Active Substance: PREDNISONE
     Route: 065
  71. PREDNISONE [Suspect]
     Active Substance: PREDNISONE
     Route: 048
  72. PREDNISONE [Suspect]
     Active Substance: PREDNISONE
     Route: 048
  73. PREDNISONE [Suspect]
     Active Substance: PREDNISONE
     Route: 048
  74. PREDNISONE [Suspect]
     Active Substance: PREDNISONE
     Route: 042
  75. PREDNISONE [Suspect]
     Active Substance: PREDNISONE
     Route: 048
  76. PREDNISONE [Suspect]
     Active Substance: PREDNISONE
     Route: 048
  77. CHLORAPREP [Suspect]
     Active Substance: CHLORHEXIDINE GLUCONATE\ISOPROPYL ALCOHOL
     Indication: Product used for unknown indication
     Route: 065
  78. CHLORAPREP [Suspect]
     Active Substance: CHLORHEXIDINE GLUCONATE\ISOPROPYL ALCOHOL
     Route: 048
  79. CHLORAPREP [Suspect]
     Active Substance: CHLORHEXIDINE GLUCONATE\ISOPROPYL ALCOHOL
     Route: 061
  80. CHLORAPREP [Suspect]
     Active Substance: CHLORHEXIDINE GLUCONATE\ISOPROPYL ALCOHOL
     Route: 061
  81. FOLIC ACID [Suspect]
     Active Substance: FOLIC ACID
     Indication: Rheumatoid arthritis
     Route: 065
  82. FOLIC ACID [Suspect]
     Active Substance: FOLIC ACID
     Indication: Product used for unknown indication
     Route: 058
  83. FOLIC ACID [Suspect]
     Active Substance: FOLIC ACID
     Route: 065
  84. FOLIC ACID [Suspect]
     Active Substance: FOLIC ACID
     Route: 048
  85. FOLIC ACID [Suspect]
     Active Substance: FOLIC ACID
     Route: 065
  86. FOLIC ACID [Suspect]
     Active Substance: FOLIC ACID
     Route: 065
  87. FOLIC ACID [Suspect]
     Active Substance: FOLIC ACID
     Route: 065
  88. FOLIC ACID [Suspect]
     Active Substance: FOLIC ACID
     Route: 065
  89. FOLIC ACID [Suspect]
     Active Substance: FOLIC ACID
     Route: 065
  90. FOLIC ACID [Suspect]
     Active Substance: FOLIC ACID
     Route: 065
  91. FOLIC ACID [Suspect]
     Active Substance: FOLIC ACID
     Route: 048
  92. FOLIC ACID [Suspect]
     Active Substance: FOLIC ACID
     Route: 048
  93. FOLIC ACID [Suspect]
     Active Substance: FOLIC ACID
     Route: 065
  94. FOLIC ACID [Suspect]
     Active Substance: FOLIC ACID
     Route: 065
  95. FOLIC ACID [Suspect]
     Active Substance: FOLIC ACID
     Route: 065
  96. FOLIC ACID [Suspect]
     Active Substance: FOLIC ACID
     Route: 065
  97. FOLIC ACID [Suspect]
     Active Substance: FOLIC ACID
     Route: 048
  98. FOLIC ACID [Suspect]
     Active Substance: FOLIC ACID
     Route: 065
  99. FOLIC ACID [Suspect]
     Active Substance: FOLIC ACID
     Route: 065
  100. FOLIC ACID [Suspect]
     Active Substance: FOLIC ACID
     Route: 065
  101. FOLIC ACID [Suspect]
     Active Substance: FOLIC ACID
     Route: 065
  102. FOLIC ACID [Suspect]
     Active Substance: FOLIC ACID
     Route: 048
  103. FOLIC ACID [Suspect]
     Active Substance: FOLIC ACID
     Route: 065
  104. CHLORHEXIDINE GLUCONATE [Suspect]
     Active Substance: CHLORHEXIDINE GLUCONATE
     Indication: Product used for unknown indication
     Route: 061
  105. CHLORHEXIDINE GLUCONATE [Suspect]
     Active Substance: CHLORHEXIDINE GLUCONATE
     Route: 048
  106. CHLORHEXIDINE GLUCONATE [Suspect]
     Active Substance: CHLORHEXIDINE GLUCONATE
     Route: 061
  107. CHLORHEXIDINE GLUCONATE [Suspect]
     Active Substance: CHLORHEXIDINE GLUCONATE
     Route: 065
  108. CHLORHEXIDINE GLUCONATE [Suspect]
     Active Substance: CHLORHEXIDINE GLUCONATE
     Route: 065
  109. CHLORHEXIDINE GLUCONATE [Suspect]
     Active Substance: CHLORHEXIDINE GLUCONATE
     Route: 065
  110. CHLORHEXIDINE GLUCONATE [Suspect]
     Active Substance: CHLORHEXIDINE GLUCONATE
     Route: 065
  111. CHLORHEXIDINE GLUCONATE [Suspect]
     Active Substance: CHLORHEXIDINE GLUCONATE
     Route: 002
  112. CHLORHEXIDINE GLUCONATE [Suspect]
     Active Substance: CHLORHEXIDINE GLUCONATE
     Route: 002
  113. CHLORHEXIDINE GLUCONATE [Suspect]
     Active Substance: CHLORHEXIDINE GLUCONATE
     Route: 065
  114. CHLORHEXIDINE GLUCONATE [Suspect]
     Active Substance: CHLORHEXIDINE GLUCONATE
     Route: 065
  115. CHLORHEXIDINE GLUCONATE [Suspect]
     Active Substance: CHLORHEXIDINE GLUCONATE
     Route: 065
  116. CHLORHEXIDINE GLUCONATE [Suspect]
     Active Substance: CHLORHEXIDINE GLUCONATE
     Route: 065
  117. CHLORHEXIDINE GLUCONATE [Suspect]
     Active Substance: CHLORHEXIDINE GLUCONATE
     Route: 065
  118. CHLORHEXIDINE GLUCONATE [Suspect]
     Active Substance: CHLORHEXIDINE GLUCONATE
     Route: 065
  119. CHLORHEXIDINE GLUCONATE [Suspect]
     Active Substance: CHLORHEXIDINE GLUCONATE
     Route: 065
  120. CHLORHEXIDINE GLUCONATE [Suspect]
     Active Substance: CHLORHEXIDINE GLUCONATE
     Route: 002
  121. CHLORHEXIDINE GLUCONATE [Suspect]
     Active Substance: CHLORHEXIDINE GLUCONATE
     Route: 002
  122. TUMS [Suspect]
     Active Substance: CALCIUM CARBONATE
     Indication: Product used for unknown indication
     Route: 065
  123. TUMS [Suspect]
     Active Substance: CALCIUM CARBONATE
     Route: 065
  124. TUMS [Suspect]
     Active Substance: CALCIUM CARBONATE
     Route: 065
  125. OXYCODONE [Suspect]
     Active Substance: OXYCODONE
     Indication: Product used for unknown indication
     Route: 065
  126. OXYCODONE [Suspect]
     Active Substance: OXYCODONE
     Route: 065
  127. COSENTYX [Suspect]
     Active Substance: SECUKINUMAB
     Indication: Rheumatoid arthritis
     Route: 042
  128. COSENTYX [Suspect]
     Active Substance: SECUKINUMAB
     Indication: Product used for unknown indication
     Route: 042
  129. COSENTYX [Suspect]
     Active Substance: SECUKINUMAB
     Indication: Psoriatic arthropathy
     Route: 005
  130. COSENTYX [Suspect]
     Active Substance: SECUKINUMAB
     Route: 042
  131. COSENTYX [Suspect]
     Active Substance: SECUKINUMAB
     Route: 005
  132. VOLTAREN [Suspect]
     Active Substance: DICLOFENAC SODIUM
     Indication: Product used for unknown indication
     Route: 065
  133. VOLTAREN [Suspect]
     Active Substance: DICLOFENAC SODIUM
     Route: 047
  134. VOLTAREN [Suspect]
     Active Substance: DICLOFENAC SODIUM
     Route: 065
  135. VOLTAREN [Suspect]
     Active Substance: DICLOFENAC SODIUM
     Route: 065
  136. VOLTAREN [Suspect]
     Active Substance: DICLOFENAC SODIUM
     Route: 065
  137. VOLTAREN [Suspect]
     Active Substance: DICLOFENAC SODIUM
     Route: 048
  138. VOLTAREN [Suspect]
     Active Substance: DICLOFENAC SODIUM
     Route: 047
  139. VOLTAREN [Suspect]
     Active Substance: DICLOFENAC SODIUM
     Route: 065
  140. VOLTAREN [Suspect]
     Active Substance: DICLOFENAC SODIUM
     Route: 058
  141. DICLOFENAC SODIUM [Suspect]
     Active Substance: DICLOFENAC SODIUM
     Indication: Product used for unknown indication
     Route: 065
  142. DICLOFENAC SODIUM [Suspect]
     Active Substance: DICLOFENAC SODIUM
     Route: 047
  143. DICLOFENAC SODIUM [Suspect]
     Active Substance: DICLOFENAC SODIUM
     Route: 048
  144. SULFASALAZINE [Suspect]
     Active Substance: SULFASALAZINE
     Indication: Product used for unknown indication
     Route: 048
  145. SULFASALAZINE [Suspect]
     Active Substance: SULFASALAZINE
     Route: 048
  146. SULFASALAZINE [Suspect]
     Active Substance: SULFASALAZINE
     Route: 048
  147. SULFASALAZINE [Suspect]
     Active Substance: SULFASALAZINE
     Route: 048
  148. SULFASALAZINE [Suspect]
     Active Substance: SULFASALAZINE
     Route: 048
  149. SULFASALAZINE [Suspect]
     Active Substance: SULFASALAZINE
     Route: 048
  150. SULFASALAZINE [Suspect]
     Active Substance: SULFASALAZINE
     Route: 058
  151. SULFASALAZINE [Suspect]
     Active Substance: SULFASALAZINE
     Route: 048
  152. SULFASALAZINE [Suspect]
     Active Substance: SULFASALAZINE
     Route: 048
  153. SULFASALAZINE [Suspect]
     Active Substance: SULFASALAZINE
     Route: 048
  154. SULFASALAZINE [Suspect]
     Active Substance: SULFASALAZINE
     Route: 048
  155. SULFASALAZINE [Suspect]
     Active Substance: SULFASALAZINE
     Route: 048
  156. SULFASALAZINE [Suspect]
     Active Substance: SULFASALAZINE
     Route: 048
  157. SULFASALAZINE [Suspect]
     Active Substance: SULFASALAZINE
     Route: 058
  158. SULFASALAZINE [Suspect]
     Active Substance: SULFASALAZINE
     Route: 048
  159. SULFASALAZINE [Suspect]
     Active Substance: SULFASALAZINE
     Route: 048
  160. SULFASALAZINE [Suspect]
     Active Substance: SULFASALAZINE
     Route: 058
  161. SULFASALAZINE [Suspect]
     Active Substance: SULFASALAZINE
     Route: 048
  162. SULFASALAZINE [Suspect]
     Active Substance: SULFASALAZINE
     Route: 065
  163. SULFASALAZINE [Suspect]
     Active Substance: SULFASALAZINE
     Route: 048
  164. SULFASALAZINE [Suspect]
     Active Substance: SULFASALAZINE
     Route: 048
  165. SULFASALAZINE [Suspect]
     Active Substance: SULFASALAZINE
     Route: 048
  166. SULFASALAZINE [Suspect]
     Active Substance: SULFASALAZINE
     Route: 048
  167. SULFASALAZINE [Suspect]
     Active Substance: SULFASALAZINE
     Dosage: DURATION 365 DAYS
     Route: 048
  168. SULFASALAZINE [Suspect]
     Active Substance: SULFASALAZINE
     Route: 065
  169. SULFASALAZINE [Suspect]
     Active Substance: SULFASALAZINE
     Route: 048
  170. SULFASALAZINE [Suspect]
     Active Substance: SULFASALAZINE
     Route: 048
  171. SULFASALAZINE [Suspect]
     Active Substance: SULFASALAZINE
     Route: 065
  172. SULFASALAZINE [Suspect]
     Active Substance: SULFASALAZINE
     Route: 065
  173. SULFASALAZINE [Suspect]
     Active Substance: SULFASALAZINE
     Route: 065
  174. SULFASALAZINE [Suspect]
     Active Substance: SULFASALAZINE
  175. SULFASALAZINE [Suspect]
     Active Substance: SULFASALAZINE
     Route: 065
  176. FOLIC ACID [Suspect]
     Active Substance: FOLIC ACID
     Indication: Rheumatoid arthritis
     Route: 065
  177. FOLIC ACID [Suspect]
     Active Substance: FOLIC ACID
     Route: 065
  178. FOLIC ACID [Suspect]
     Active Substance: FOLIC ACID
     Route: 065
  179. FOLIC ACID [Suspect]
     Active Substance: FOLIC ACID
     Route: 065
  180. FOLIC ACID [Suspect]
     Active Substance: FOLIC ACID
     Route: 065
  181. FOLIC ACID [Suspect]
     Active Substance: FOLIC ACID
     Route: 065
  182. FOLIC ACID [Suspect]
     Active Substance: FOLIC ACID
     Dosage: 1 MG, QD
     Route: 065
  183. FOLIC ACID [Suspect]
     Active Substance: FOLIC ACID
     Route: 058
  184. FOLIC ACID [Suspect]
     Active Substance: FOLIC ACID
     Route: 048
  185. FOLIC ACID [Suspect]
     Active Substance: FOLIC ACID
     Route: 065
  186. FOLIC ACID [Suspect]
     Active Substance: FOLIC ACID
     Route: 048
  187. FOLIC ACID [Suspect]
     Active Substance: FOLIC ACID
     Route: 065
  188. FOLIC ACID [Suspect]
     Active Substance: FOLIC ACID
     Route: 065
  189. FOLIC ACID [Suspect]
     Active Substance: FOLIC ACID
     Route: 048
  190. FOLIC ACID [Suspect]
     Active Substance: FOLIC ACID
     Route: 065
  191. FOLIC ACID [Suspect]
     Active Substance: FOLIC ACID
     Dosage: 5 MG, QD
     Route: 065
  192. FOLIC ACID [Suspect]
     Active Substance: FOLIC ACID
     Route: 065
  193. FOLIC ACID [Suspect]
     Active Substance: FOLIC ACID
     Route: 065
  194. FOLIC ACID [Suspect]
     Active Substance: FOLIC ACID
     Route: 048
  195. FOLIC ACID [Suspect]
     Active Substance: FOLIC ACID
     Route: 048
  196. DICLOFENAC [Suspect]
     Active Substance: DICLOFENAC
     Indication: Product used for unknown indication
     Route: 048
  197. DICLOFENAC [Suspect]
     Active Substance: DICLOFENAC
     Route: 058
  198. DICLOFENAC [Suspect]
     Active Substance: DICLOFENAC
     Route: 031
  199. DICLOFENAC [Suspect]
     Active Substance: DICLOFENAC
     Route: 065
  200. ALENDRONATE SODIUM [Suspect]
     Active Substance: ALENDRONATE SODIUM
     Indication: Rheumatoid arthritis
     Route: 048
  201. ALENDRONATE SODIUM [Suspect]
     Active Substance: ALENDRONATE SODIUM
     Route: 048
  202. ALENDRONATE SODIUM [Suspect]
     Active Substance: ALENDRONATE SODIUM
     Route: 065
  203. ADALIMUMAB [Suspect]
     Active Substance: ADALIMUMAB
     Indication: Rheumatoid arthritis
     Route: 048
  204. ADALIMUMAB [Suspect]
     Active Substance: ADALIMUMAB
     Indication: Psoriatic arthropathy
     Route: 065
  205. ADALIMUMAB [Suspect]
     Active Substance: ADALIMUMAB
     Indication: Product used for unknown indication
     Route: 042
  206. ADALIMUMAB [Suspect]
     Active Substance: ADALIMUMAB
     Route: 058
  207. ADALIMUMAB [Suspect]
     Active Substance: ADALIMUMAB
     Route: 058
  208. ADALIMUMAB [Suspect]
     Active Substance: ADALIMUMAB
     Route: 058
  209. PREDNISONE [Suspect]
     Active Substance: PREDNISONE
     Indication: Rheumatoid arthritis
     Route: 048
  210. DILTIAZEM HYDROCHLORIDE [Suspect]
     Active Substance: DILTIAZEM HYDROCHLORIDE
     Indication: Product used for unknown indication
     Route: 065
  211. APREPITANT [Suspect]
     Active Substance: APREPITANT
     Indication: Product used for unknown indication
     Route: 048
  212. APREPITANT [Suspect]
     Active Substance: APREPITANT
     Route: 065
  213. APREPITANT [Suspect]
     Active Substance: APREPITANT
     Route: 042
  214. APREPITANT [Suspect]
     Active Substance: APREPITANT
     Route: 042
  215. APREPITANT [Suspect]
     Active Substance: APREPITANT
     Route: 042
  216. DESOXIMETASONE [Suspect]
     Active Substance: DESOXIMETASONE
     Indication: Rheumatoid arthritis
     Route: 048
  217. DESOXIMETASONE [Suspect]
     Active Substance: DESOXIMETASONE
     Indication: Product used for unknown indication
     Route: 003
  218. DESOXIMETASONE [Suspect]
     Active Substance: DESOXIMETASONE
     Route: 061
  219. DESOXIMETASONE [Suspect]
     Active Substance: DESOXIMETASONE
     Route: 061
  220. DESOXIMETASONE [Suspect]
     Active Substance: DESOXIMETASONE
     Route: 061
  221. DESOXIMETASONE [Suspect]
     Active Substance: DESOXIMETASONE
     Route: 058
  222. DESOXIMETASONE [Suspect]
     Active Substance: DESOXIMETASONE
     Route: 065
  223. DESOXIMETASONE [Suspect]
     Active Substance: DESOXIMETASONE
     Route: 003
  224. DESOXIMETASONE [Suspect]
     Active Substance: DESOXIMETASONE
     Route: 048
  225. DESOXIMETASONE [Suspect]
     Active Substance: DESOXIMETASONE
     Route: 065
  226. DESOXIMETASONE [Suspect]
     Active Substance: DESOXIMETASONE
     Route: 048
  227. DESOXIMETASONE [Suspect]
     Active Substance: DESOXIMETASONE
     Route: 061
  228. DESOXIMETASONE [Suspect]
     Active Substance: DESOXIMETASONE
     Route: 058
  229. DESOXIMETASONE [Suspect]
     Active Substance: DESOXIMETASONE
     Route: 048
  230. DESOXIMETASONE [Suspect]
     Active Substance: DESOXIMETASONE
     Route: 042
  231. DESOXIMETASONE [Suspect]
     Active Substance: DESOXIMETASONE
     Route: 065
  232. DESOXIMETASONE [Suspect]
     Active Substance: DESOXIMETASONE
     Dosage: 25 MG, WE (25 MG, QW)
     Route: 048
  233. DESOXIMETASONE [Suspect]
     Active Substance: DESOXIMETASONE
     Route: 058
  234. DESOXIMETASONE [Suspect]
     Active Substance: DESOXIMETASONE
     Route: 065
  235. DESOXIMETASONE [Suspect]
     Active Substance: DESOXIMETASONE
     Route: 003
  236. DESOXIMETASONE [Suspect]
     Active Substance: DESOXIMETASONE
     Route: 042
  237. DESOXIMETASONE [Suspect]
     Active Substance: DESOXIMETASONE
     Route: 058
  238. DESOXIMETASONE [Suspect]
     Active Substance: DESOXIMETASONE
     Route: 065
  239. DESOXIMETASONE [Suspect]
     Active Substance: DESOXIMETASONE
     Route: 048
  240. DESOXIMETASONE [Suspect]
     Active Substance: DESOXIMETASONE
     Route: 048
  241. DESOXIMETASONE [Suspect]
     Active Substance: DESOXIMETASONE
     Route: 003
  242. DESOXIMETASONE [Suspect]
     Active Substance: DESOXIMETASONE
     Route: 058
  243. DESOXIMETASONE [Suspect]
     Active Substance: DESOXIMETASONE
     Route: 048
  244. DESOXIMETASONE [Suspect]
     Active Substance: DESOXIMETASONE
     Route: 050
  245. DESOXIMETASONE [Suspect]
     Active Substance: DESOXIMETASONE
     Route: 050
  246. DESOXIMETASONE [Suspect]
     Active Substance: DESOXIMETASONE
     Route: 048
  247. DESOXIMETASONE [Suspect]
     Active Substance: DESOXIMETASONE
     Route: 048
  248. DESOXIMETASONE [Suspect]
     Active Substance: DESOXIMETASONE
     Route: 003
  249. DESOXIMETASONE [Suspect]
     Active Substance: DESOXIMETASONE
     Dosage: UNK UNK, WE (UNK, QW)
     Route: 048
  250. DESOXIMETASONE [Suspect]
     Active Substance: DESOXIMETASONE
     Route: 061
  251. DESOXIMETASONE [Suspect]
     Active Substance: DESOXIMETASONE
     Route: 003
  252. DESOXIMETASONE [Suspect]
     Active Substance: DESOXIMETASONE
     Route: 065
  253. DESOXIMETASONE [Suspect]
     Active Substance: DESOXIMETASONE
     Route: 058
  254. DESOXIMETASONE [Suspect]
     Active Substance: DESOXIMETASONE
     Route: 065
  255. DESOXIMETASONE [Suspect]
     Active Substance: DESOXIMETASONE
     Route: 048
  256. DESOXIMETASONE [Suspect]
     Active Substance: DESOXIMETASONE
     Route: 003
  257. DESOXIMETASONE [Suspect]
     Active Substance: DESOXIMETASONE
     Route: 003
  258. DESOXIMETASONE [Suspect]
     Active Substance: DESOXIMETASONE
     Route: 003
  259. DESOXIMETASONE [Suspect]
     Active Substance: DESOXIMETASONE
     Route: 058
  260. DESOXIMETASONE [Suspect]
     Active Substance: DESOXIMETASONE
     Route: 058
  261. APREMILAST [Suspect]
     Active Substance: APREMILAST
     Indication: Product used for unknown indication
     Route: 065
  262. APREMILAST [Suspect]
     Active Substance: APREMILAST
     Route: 048
  263. DICLOFENAC [Suspect]
     Active Substance: DICLOFENAC
     Indication: Product used for unknown indication
     Route: 058
  264. DICLOFENAC [Suspect]
     Active Substance: DICLOFENAC
     Route: 065
  265. DICLOFENAC [Suspect]
     Active Substance: DICLOFENAC
     Route: 065
  266. DICLOFENAC [Suspect]
     Active Substance: DICLOFENAC
     Route: 048
  267. DICLOFENAC [Suspect]
     Active Substance: DICLOFENAC
     Route: 065
  268. DICLOFENAC [Suspect]
     Active Substance: DICLOFENAC
     Route: 065
  269. ONEALFA [Suspect]
     Active Substance: ALFACALCIDOL
     Indication: Product used for unknown indication
     Route: 065
  270. PANTOPRAZOLE [Suspect]
     Active Substance: PANTOPRAZOLE
     Indication: Product used for unknown indication
     Route: 065
  271. PANTOPRAZOLE [Suspect]
     Active Substance: PANTOPRAZOLE
     Route: 016
  272. ALENDRONATE SODIUM [Suspect]
     Active Substance: ALENDRONATE SODIUM
     Indication: Product used for unknown indication
     Route: 048
  273. ALENDRONATE SODIUM [Suspect]
     Active Substance: ALENDRONATE SODIUM
     Indication: Rheumatoid arthritis
     Route: 048
  274. ALENDRONATE SODIUM [Suspect]
     Active Substance: ALENDRONATE SODIUM
     Route: 065
  275. ADALIMUMAB [Suspect]
     Active Substance: ADALIMUMAB
     Indication: Rheumatoid arthritis
     Route: 058
  276. ADALIMUMAB [Suspect]
     Active Substance: ADALIMUMAB
     Indication: Psoriatic arthropathy
  277. INFLIXIMAB [Suspect]
     Active Substance: INFLIXIMAB
     Indication: Rheumatoid arthritis
     Route: 042
  278. INFLIXIMAB [Suspect]
     Active Substance: INFLIXIMAB
     Indication: Product used for unknown indication
     Route: 042
  279. INFLIXIMAB [Suspect]
     Active Substance: INFLIXIMAB
     Route: 042
  280. INFLIXIMAB [Suspect]
     Active Substance: INFLIXIMAB
     Route: 065
  281. INFLIXIMAB [Suspect]
     Active Substance: INFLIXIMAB
     Route: 065
  282. CELEBREX [Suspect]
     Active Substance: CELECOXIB
     Indication: Arthritis
     Route: 065
  283. CELEBREX [Suspect]
     Active Substance: CELECOXIB
     Indication: Rheumatoid arthritis
     Dosage: 1 DF, QD (1 DOSAGE FORM, QD)
     Route: 048
  284. CELEBREX [Suspect]
     Active Substance: CELECOXIB
     Route: 048
  285. CELEBREX [Suspect]
     Active Substance: CELECOXIB
     Dosage: 2 DF, QW
     Route: 048
  286. CELEBREX [Suspect]
     Active Substance: CELECOXIB
     Route: 048
  287. CELEBREX [Suspect]
     Active Substance: CELECOXIB
     Route: 065
  288. OXYCODONE HYDROCHLORIDE [Suspect]
     Active Substance: OXYCODONE HYDROCHLORIDE
     Indication: Product used for unknown indication
     Route: 065
  289. OXYCODONE HYDROCHLORIDE [Suspect]
     Active Substance: OXYCODONE HYDROCHLORIDE
     Route: 065
  290. HUMIRA [Suspect]
     Active Substance: ADALIMUMAB
     Indication: Rheumatoid arthritis
     Route: 058
  291. HUMIRA [Suspect]
     Active Substance: ADALIMUMAB
     Indication: Psoriatic arthropathy
     Route: 058
  292. HUMIRA [Suspect]
     Active Substance: ADALIMUMAB
     Indication: Product used for unknown indication
     Route: 058
  293. HUMIRA [Suspect]
     Active Substance: ADALIMUMAB
     Route: 058
  294. HUMIRA [Suspect]
     Active Substance: ADALIMUMAB
     Route: 065
  295. RITUXIMAB [Suspect]
     Active Substance: RITUXIMAB
     Indication: Rheumatoid arthritis
     Route: 065
  296. RITUXIMAB [Suspect]
     Active Substance: RITUXIMAB
     Indication: Product used for unknown indication
     Route: 016
  297. RITUXIMAB [Suspect]
     Active Substance: RITUXIMAB
     Route: 042
  298. RITUXIMAB [Suspect]
     Active Substance: RITUXIMAB
     Route: 016
  299. RITUXIMAB [Suspect]
     Active Substance: RITUXIMAB
     Route: 058
  300. RITUXIMAB [Suspect]
     Active Substance: RITUXIMAB
     Route: 058
  301. RITUXIMAB [Suspect]
     Active Substance: RITUXIMAB
     Route: 042
  302. RITUXIMAB [Suspect]
     Active Substance: RITUXIMAB
     Route: 065
  303. DICLOFENAC DIETHYLAMINE [Suspect]
     Active Substance: DICLOFENAC DIETHYLAMINE
     Indication: Product used for unknown indication
     Route: 065
  304. DICLOFENAC DIETHYLAMINE [Suspect]
     Active Substance: DICLOFENAC DIETHYLAMINE
     Route: 065
  305. OXYCODONE AND ACETAMINOPHEN [Suspect]
     Active Substance: ACETAMINOPHEN\OXYCODONE HYDROCHLORIDE
     Indication: Product used for unknown indication
     Route: 065
  306. TRIAMCINOLONE ACETONIDE [Suspect]
     Active Substance: TRIAMCINOLONE ACETONIDE
     Indication: Rheumatoid arthritis
     Route: 014
  307. CIMZIA [Suspect]
     Active Substance: CERTOLIZUMAB PEGOL
     Indication: Psoriatic arthropathy
     Route: 005
  308. CIMZIA [Suspect]
     Active Substance: CERTOLIZUMAB PEGOL
     Indication: Psoriasis
     Route: 065
  309. CIMZIA [Suspect]
     Active Substance: CERTOLIZUMAB PEGOL
     Indication: Rheumatoid arthritis
     Route: 065
  310. CIMZIA [Suspect]
     Active Substance: CERTOLIZUMAB PEGOL
     Indication: Product used for unknown indication
     Route: 065
  311. CIMZIA [Suspect]
     Active Substance: CERTOLIZUMAB PEGOL
     Route: 065
  312. CIMZIA [Suspect]
     Active Substance: CERTOLIZUMAB PEGOL
     Route: 058
  313. CIMZIA [Suspect]
     Active Substance: CERTOLIZUMAB PEGOL
     Route: 042
  314. CIMZIA [Suspect]
     Active Substance: CERTOLIZUMAB PEGOL
     Route: 005
  315. CIMZIA [Suspect]
     Active Substance: CERTOLIZUMAB PEGOL
     Route: 065
  316. CIMZIA [Suspect]
     Active Substance: CERTOLIZUMAB PEGOL
     Route: 065
  317. CIMZIA [Suspect]
     Active Substance: CERTOLIZUMAB PEGOL
     Route: 058
  318. CIMZIA [Suspect]
     Active Substance: CERTOLIZUMAB PEGOL
     Route: 042
  319. CIMZIA [Suspect]
     Active Substance: CERTOLIZUMAB PEGOL
     Route: 058
  320. CIMZIA [Suspect]
     Active Substance: CERTOLIZUMAB PEGOL
     Route: 058
  321. CIMZIA [Suspect]
     Active Substance: CERTOLIZUMAB PEGOL
     Route: 065
  322. CIMZIA [Suspect]
     Active Substance: CERTOLIZUMAB PEGOL
     Route: 058
  323. CIMZIA [Suspect]
     Active Substance: CERTOLIZUMAB PEGOL
     Route: 058
  324. CIMZIA [Suspect]
     Active Substance: CERTOLIZUMAB PEGOL
     Route: 065
  325. CIMZIA [Suspect]
     Active Substance: CERTOLIZUMAB PEGOL
     Route: 065
  326. CIMZIA [Suspect]
     Active Substance: CERTOLIZUMAB PEGOL
     Route: 058
  327. ACTEMRA [Suspect]
     Active Substance: TOCILIZUMAB
     Indication: Rheumatoid arthritis
     Route: 042
  328. ACTEMRA [Suspect]
     Active Substance: TOCILIZUMAB
     Indication: Product used for unknown indication
     Route: 065
  329. ACTEMRA [Suspect]
     Active Substance: TOCILIZUMAB
     Route: 058
  330. ACTEMRA [Suspect]
     Active Substance: TOCILIZUMAB
     Route: 061
  331. ACTEMRA [Suspect]
     Active Substance: TOCILIZUMAB
     Route: 016
  332. ACTEMRA [Suspect]
     Active Substance: TOCILIZUMAB
     Route: 042
  333. ACTEMRA [Suspect]
     Active Substance: TOCILIZUMAB
     Route: 065
  334. ACTEMRA [Suspect]
     Active Substance: TOCILIZUMAB
     Route: 042
  335. ACTEMRA [Suspect]
     Active Substance: TOCILIZUMAB
     Route: 042
  336. ACTEMRA [Suspect]
     Active Substance: TOCILIZUMAB
     Route: 016
  337. ACTEMRA [Suspect]
     Active Substance: TOCILIZUMAB
     Route: 058
  338. ACTEMRA [Suspect]
     Active Substance: TOCILIZUMAB
     Dosage: 752 MG, WE (752 MG, QW)
     Route: 042
  339. ACTEMRA [Suspect]
     Active Substance: TOCILIZUMAB
     Route: 061
  340. ACTEMRA [Suspect]
     Active Substance: TOCILIZUMAB
     Route: 016
  341. ACTEMRA [Suspect]
     Active Substance: TOCILIZUMAB
     Dosage: 2912 MG, WE (2912 MG, QW)
     Route: 065
  342. ACTEMRA [Suspect]
     Active Substance: TOCILIZUMAB
     Dosage: 1 DF, WE (1 DOSAGE FORM, QW)
     Route: 058
  343. ACTEMRA [Suspect]
     Active Substance: TOCILIZUMAB
     Route: 065
  344. ACTEMRA [Suspect]
     Active Substance: TOCILIZUMAB
     Dosage: 1 DF, WE (1 DOSAGE FORM, QW)
     Route: 042
  345. ACTEMRA [Suspect]
     Active Substance: TOCILIZUMAB
     Route: 042
  346. ACTEMRA [Suspect]
     Active Substance: TOCILIZUMAB
     Route: 042
  347. ACTEMRA [Suspect]
     Active Substance: TOCILIZUMAB
     Route: 048
  348. ACTEMRA [Suspect]
     Active Substance: TOCILIZUMAB
     Dosage: UNK UNK, WE (UNK, QW)
     Route: 058
  349. ACTEMRA [Suspect]
     Active Substance: TOCILIZUMAB
     Route: 042
  350. ACTEMRA [Suspect]
     Active Substance: TOCILIZUMAB
     Route: 042
  351. ACTEMRA [Suspect]
     Active Substance: TOCILIZUMAB
     Route: 042
  352. ACTEMRA [Suspect]
     Active Substance: TOCILIZUMAB
     Route: 042
  353. ACTEMRA [Suspect]
     Active Substance: TOCILIZUMAB
     Dosage: 3011.2 MG, WE (3011.2 MG, QW)
     Route: 058
  354. ACTEMRA [Suspect]
     Active Substance: TOCILIZUMAB
     Route: 016
  355. ACTEMRA [Suspect]
     Active Substance: TOCILIZUMAB
     Route: 065
  356. ACTEMRA [Suspect]
     Active Substance: TOCILIZUMAB
     Route: 042
  357. ACTEMRA [Suspect]
     Active Substance: TOCILIZUMAB
     Route: 042
  358. ACTEMRA [Suspect]
     Active Substance: TOCILIZUMAB
     Route: 016
  359. ACTEMRA [Suspect]
     Active Substance: TOCILIZUMAB
     Route: 065
  360. ACTEMRA [Suspect]
     Active Substance: TOCILIZUMAB
     Route: 058
  361. ACTEMRA [Suspect]
     Active Substance: TOCILIZUMAB
     Route: 065
  362. ACTEMRA [Suspect]
     Active Substance: TOCILIZUMAB
     Route: 065
  363. ACTEMRA [Suspect]
     Active Substance: TOCILIZUMAB
     Route: 048
  364. ACTEMRA [Suspect]
     Active Substance: TOCILIZUMAB
     Route: 042
  365. ACTEMRA [Suspect]
     Active Substance: TOCILIZUMAB
     Route: 042
  366. ACTEMRA [Suspect]
     Active Substance: TOCILIZUMAB
     Route: 042
  367. ACTEMRA [Suspect]
     Active Substance: TOCILIZUMAB
     Route: 065
  368. ACTEMRA [Suspect]
     Active Substance: TOCILIZUMAB
     Route: 016
  369. ACTEMRA [Suspect]
     Active Substance: TOCILIZUMAB
     Route: 058
  370. ACTEMRA [Suspect]
     Active Substance: TOCILIZUMAB
     Route: 048
  371. ACTEMRA [Suspect]
     Active Substance: TOCILIZUMAB
     Dosage: 2912 MG, WE (2912 MG, QW)
     Route: 042
  372. PREDNISONE [Suspect]
     Active Substance: PREDNISONE
     Indication: Systemic lupus erythematosus
     Route: 065
  373. PREDNISONE [Suspect]
     Active Substance: PREDNISONE
     Indication: Pemphigus
     Route: 065
  374. PREDNISONE [Suspect]
     Active Substance: PREDNISONE
     Indication: Synovitis
     Route: 048
  375. PREDNISONE [Suspect]
     Active Substance: PREDNISONE
     Indication: Psoriatic arthropathy
     Route: 065
  376. PREDNISONE [Suspect]
     Active Substance: PREDNISONE
     Indication: Rheumatoid arthritis
     Route: 048
  377. PREDNISONE [Suspect]
     Active Substance: PREDNISONE
     Indication: Bursitis
     Route: 065
  378. PREDNISONE [Suspect]
     Active Substance: PREDNISONE
     Indication: Inflammation
     Route: 065
  379. PREDNISONE [Suspect]
     Active Substance: PREDNISONE
     Indication: Product used for unknown indication
     Route: 065
  380. PREDNISONE [Suspect]
     Active Substance: PREDNISONE
     Route: 065
  381. PREDNISONE [Suspect]
     Active Substance: PREDNISONE
     Route: 048
  382. PREDNISONE [Suspect]
     Active Substance: PREDNISONE
     Route: 048
  383. PREDNISONE [Suspect]
     Active Substance: PREDNISONE
     Route: 048
  384. ORENCIA [Suspect]
     Active Substance: ABATACEPT
     Indication: Rheumatoid arthritis
     Route: 065
  385. ORENCIA [Suspect]
     Active Substance: ABATACEPT
     Indication: Product used for unknown indication
     Dosage: 17.875 MG, QD
     Route: 041
  386. ORENCIA [Suspect]
     Active Substance: ABATACEPT
     Dosage: 125 MG, WE (125 MG, QW)
     Route: 058
  387. ORENCIA [Suspect]
     Active Substance: ABATACEPT
     Route: 042
  388. ORENCIA [Suspect]
     Active Substance: ABATACEPT
     Route: 058
  389. ORENCIA [Suspect]
     Active Substance: ABATACEPT
     Route: 065
  390. ORENCIA [Suspect]
     Active Substance: ABATACEPT
     Route: 015
  391. ORENCIA [Suspect]
     Active Substance: ABATACEPT
     Dosage: 18 MG, QD
     Route: 058
  392. ORENCIA [Suspect]
     Active Substance: ABATACEPT
     Dosage: 17.875 MG, QD
     Route: 058
  393. ORENCIA [Suspect]
     Active Substance: ABATACEPT
     Route: 058
  394. ORENCIA [Suspect]
     Active Substance: ABATACEPT
     Route: 042
  395. ORENCIA [Suspect]
     Active Substance: ABATACEPT
     Route: 042
  396. ORENCIA [Suspect]
     Active Substance: ABATACEPT
     Dosage: 6 MG, QD (3 MG, BID)
     Route: 048
  397. ORENCIA [Suspect]
     Active Substance: ABATACEPT
     Dosage: 125 MG, WE (125 MG, QW)
     Route: 058
  398. ORENCIA [Suspect]
     Active Substance: ABATACEPT
     Dosage: 120 MG, WE (120 MG, QW)
     Route: 058
  399. ORENCIA [Suspect]
     Active Substance: ABATACEPT
     Route: 065
  400. ORENCIA [Suspect]
     Active Substance: ABATACEPT
     Route: 065
  401. ORENCIA [Suspect]
     Active Substance: ABATACEPT
     Route: 058
  402. ORENCIA [Suspect]
     Active Substance: ABATACEPT
     Route: 017
  403. ORENCIA [Suspect]
     Active Substance: ABATACEPT
     Route: 058
  404. ORENCIA [Suspect]
     Active Substance: ABATACEPT
     Dosage: 125 MG, WE (125 MG, QW)
     Route: 048
  405. ORENCIA [Suspect]
     Active Substance: ABATACEPT
     Route: 065
  406. ORENCIA [Suspect]
     Active Substance: ABATACEPT
     Route: 017
  407. ORENCIA [Suspect]
     Active Substance: ABATACEPT
     Route: 048
  408. STELARA [Suspect]
     Active Substance: USTEKINUMAB
     Indication: Product used for unknown indication
     Route: 058
  409. STELARA [Suspect]
     Active Substance: USTEKINUMAB
     Indication: Rheumatoid arthritis
     Route: 042
  410. STELARA [Suspect]
     Active Substance: USTEKINUMAB
     Route: 042
  411. STELARA [Suspect]
     Active Substance: USTEKINUMAB
     Route: 058
  412. DILTIAZEM [Suspect]
     Active Substance: DILTIAZEM
     Indication: Product used for unknown indication
     Route: 065
  413. TUMS ULTRA [Suspect]
     Active Substance: CALCIUM CARBONATE
     Indication: Product used for unknown indication
     Route: 065
  414. RITUXIMAB [Suspect]
     Active Substance: RITUXIMAB
     Indication: Rheumatoid arthritis
     Route: 058
  415. RITUXIMAB [Suspect]
     Active Substance: RITUXIMAB
     Route: 042
  416. RITUXIMAB [Suspect]
     Active Substance: RITUXIMAB
     Route: 016
  417. RITUXIMAB [Suspect]
     Active Substance: RITUXIMAB
     Route: 042
  418. RITUXIMAB [Suspect]
     Active Substance: RITUXIMAB
     Route: 058
  419. FOSAMAX [Suspect]
     Active Substance: ALENDRONATE SODIUM
     Indication: Rheumatoid arthritis
     Route: 065
  420. FOSAMAX [Suspect]
     Active Substance: ALENDRONATE SODIUM
     Indication: Product used for unknown indication
     Route: 048
  421. FOSAMAX [Suspect]
     Active Substance: ALENDRONATE SODIUM
     Route: 048
  422. FOSAMAX [Suspect]
     Active Substance: ALENDRONATE SODIUM
     Route: 065
  423. FOSAMAX [Suspect]
     Active Substance: ALENDRONATE SODIUM
     Route: 048
  424. FOSAMAX [Suspect]
     Active Substance: ALENDRONATE SODIUM
     Route: 065
  425. FOSAMAX [Suspect]
     Active Substance: ALENDRONATE SODIUM
     Route: 016
  426. FOSAMAX [Suspect]
     Active Substance: ALENDRONATE SODIUM
     Route: 048
  427. FOSAMAX [Suspect]
     Active Substance: ALENDRONATE SODIUM
     Route: 005
  428. FOSAMAX [Suspect]
     Active Substance: ALENDRONATE SODIUM
     Route: 005
  429. FOSAMAX [Suspect]
     Active Substance: ALENDRONATE SODIUM
     Route: 005
  430. FOSAMAX [Suspect]
     Active Substance: ALENDRONATE SODIUM
     Route: 016
  431. FOSAMAX [Suspect]
     Active Substance: ALENDRONATE SODIUM
     Route: 065
  432. FOSAMAX [Suspect]
     Active Substance: ALENDRONATE SODIUM
     Route: 048
  433. FOSAMAX [Suspect]
     Active Substance: ALENDRONATE SODIUM
     Route: 048
  434. FOSAMAX [Suspect]
     Active Substance: ALENDRONATE SODIUM
     Route: 065
  435. FOSAMAX [Suspect]
     Active Substance: ALENDRONATE SODIUM
     Route: 058
  436. FOSAMAX [Suspect]
     Active Substance: ALENDRONATE SODIUM
     Route: 048
  437. FOSAMAX [Suspect]
     Active Substance: ALENDRONATE SODIUM
     Route: 005
  438. FOSAMAX [Suspect]
     Active Substance: ALENDRONATE SODIUM
     Route: 058
  439. FOSAMAX [Suspect]
     Active Substance: ALENDRONATE SODIUM
     Route: 065
  440. FOSAMAX [Suspect]
     Active Substance: ALENDRONATE SODIUM
     Route: 048
  441. FOSAMAX [Suspect]
     Active Substance: ALENDRONATE SODIUM
     Route: 048
  442. FOSAMAX [Suspect]
     Active Substance: ALENDRONATE SODIUM
     Route: 048
  443. FOSAMAX [Suspect]
     Active Substance: ALENDRONATE SODIUM
     Route: 048
  444. TUMS ULTRA [Suspect]
     Active Substance: CALCIUM CARBONATE
     Indication: Product used for unknown indication
     Route: 065
  445. TUMS ULTRA [Suspect]
     Active Substance: CALCIUM CARBONATE
     Route: 065
  446. CHLORHEXIDINE GLUCONATE [Suspect]
     Active Substance: CHLORHEXIDINE GLUCONATE
     Indication: Product used for unknown indication
     Route: 065
  447. CHLORHEXIDINE GLUCONATE [Suspect]
     Active Substance: CHLORHEXIDINE GLUCONATE
     Route: 065
  448. CHLORHEXIDINE GLUCONATE [Suspect]
     Active Substance: CHLORHEXIDINE GLUCONATE
     Route: 065
  449. CHLORHEXIDINE GLUCONATE [Suspect]
     Active Substance: CHLORHEXIDINE GLUCONATE
     Route: 065
  450. CHLORHEXIDINE GLUCONATE [Suspect]
     Active Substance: CHLORHEXIDINE GLUCONATE
     Route: 002
  451. CHLORHEXIDINE GLUCONATE [Suspect]
     Active Substance: CHLORHEXIDINE GLUCONATE
     Route: 002
  452. CHLORHEXIDINE GLUCONATE [Suspect]
     Active Substance: CHLORHEXIDINE GLUCONATE
     Route: 061
  453. CHLORHEXIDINE GLUCONATE [Suspect]
     Active Substance: CHLORHEXIDINE GLUCONATE
     Route: 061
  454. CHLORHEXIDINE GLUCONATE [Suspect]
     Active Substance: CHLORHEXIDINE GLUCONATE
     Route: 048
  455. MOXIFLOXACIN [Suspect]
     Active Substance: MOXIFLOXACIN
     Indication: Product used for unknown indication
     Route: 058
  456. TOFACITINIB CITRATE [Suspect]
     Active Substance: TOFACITINIB CITRATE
     Indication: Product used for unknown indication
     Route: 048
  457. TOFACITINIB CITRATE [Suspect]
     Active Substance: TOFACITINIB CITRATE
     Indication: Psoriatic arthropathy
     Route: 048
  458. TOFACITINIB CITRATE [Suspect]
     Active Substance: TOFACITINIB CITRATE
     Indication: Rheumatoid arthritis
     Route: 065
  459. TOFACITINIB CITRATE [Suspect]
     Active Substance: TOFACITINIB CITRATE
     Route: 065
  460. TOFACITINIB CITRATE [Suspect]
     Active Substance: TOFACITINIB CITRATE
     Route: 058
  461. APREPITANT [Suspect]
     Active Substance: APREPITANT
     Indication: Product used for unknown indication
     Route: 042
  462. APREPITANT [Suspect]
     Active Substance: APREPITANT
     Route: 065
  463. APREPITANT [Suspect]
     Active Substance: APREPITANT
     Route: 048
  464. APREPITANT [Suspect]
     Active Substance: APREPITANT
     Route: 042
  465. HYDROCORTISONE SODIUM SUCCINATE [Suspect]
     Active Substance: HYDROCORTISONE SODIUM SUCCINATE
     Indication: Rheumatoid arthritis
     Route: 065
  466. HYDROCORTISONE SODIUM SUCCINATE [Suspect]
     Active Substance: HYDROCORTISONE SODIUM SUCCINATE
     Indication: Product used for unknown indication
     Route: 003
  467. HYDROCORTISONE SODIUM SUCCINATE [Suspect]
     Active Substance: HYDROCORTISONE SODIUM SUCCINATE
     Route: 058
  468. HYDROCORTISONE SODIUM SUCCINATE [Suspect]
     Active Substance: HYDROCORTISONE SODIUM SUCCINATE
     Route: 065
  469. HYDROCORTISONE SODIUM SUCCINATE [Suspect]
     Active Substance: HYDROCORTISONE SODIUM SUCCINATE
     Route: 065
  470. HYDROCORTISONE SODIUM SUCCINATE [Suspect]
     Active Substance: HYDROCORTISONE SODIUM SUCCINATE
     Route: 061
  471. HYDROCORTISONE SODIUM SUCCINATE [Suspect]
     Active Substance: HYDROCORTISONE SODIUM SUCCINATE
     Route: 061
  472. HYDROCORTISONE SODIUM SUCCINATE [Suspect]
     Active Substance: HYDROCORTISONE SODIUM SUCCINATE
     Route: 065
  473. HYDROCORTISONE SODIUM SUCCINATE [Suspect]
     Active Substance: HYDROCORTISONE SODIUM SUCCINATE
     Route: 048
  474. HYDROCORTISONE SODIUM SUCCINATE [Suspect]
     Active Substance: HYDROCORTISONE SODIUM SUCCINATE
     Route: 058
  475. HUMIRA [Suspect]
     Active Substance: ADALIMUMAB
     Indication: Rheumatoid arthritis
     Route: 058
  476. HUMIRA [Suspect]
     Active Substance: ADALIMUMAB
     Indication: Psoriatic arthropathy
  477. HYDROXYCHLOROQUINE [Suspect]
     Active Substance: HYDROXYCHLOROQUINE
     Indication: Product used for unknown indication
     Route: 048
  478. HYDROXYCHLOROQUINE [Suspect]
     Active Substance: HYDROXYCHLOROQUINE
     Indication: Rheumatoid arthritis
     Route: 048
  479. HYDROXYCHLOROQUINE [Suspect]
     Active Substance: HYDROXYCHLOROQUINE
     Route: 065
  480. HYDROXYCHLOROQUINE [Suspect]
     Active Substance: HYDROXYCHLOROQUINE
     Route: 065
  481. HYDROXYCHLOROQUINE [Suspect]
     Active Substance: HYDROXYCHLOROQUINE
     Route: 065
  482. HYDROXYCHLOROQUINE [Suspect]
     Active Substance: HYDROXYCHLOROQUINE
     Route: 065
  483. HYDROXYCHLOROQUINE [Suspect]
     Active Substance: HYDROXYCHLOROQUINE
     Route: 065
  484. HYDROXYCHLOROQUINE [Suspect]
     Active Substance: HYDROXYCHLOROQUINE
     Route: 058
  485. HYDROXYCHLOROQUINE [Suspect]
     Active Substance: HYDROXYCHLOROQUINE
     Route: 065
  486. HYDROXYCHLOROQUINE [Suspect]
     Active Substance: HYDROXYCHLOROQUINE
     Route: 065
  487. HYDROXYCHLOROQUINE [Suspect]
     Active Substance: HYDROXYCHLOROQUINE
     Route: 048
  488. HYDROXYCHLOROQUINE [Suspect]
     Active Substance: HYDROXYCHLOROQUINE
     Route: 065
  489. HYDROXYCHLOROQUINE [Suspect]
     Active Substance: HYDROXYCHLOROQUINE
     Route: 065
  490. HYDROXYCHLOROQUINE [Suspect]
     Active Substance: HYDROXYCHLOROQUINE
     Route: 065
  491. ORENCIA [Suspect]
     Active Substance: ABATACEPT
     Indication: Rheumatoid arthritis
     Dosage: 3 MG (1 EVERY .5 DAYS)
     Route: 048
  492. ORENCIA [Suspect]
     Active Substance: ABATACEPT
     Dosage: UNK, QD
     Route: 048
  493. ORENCIA [Suspect]
     Active Substance: ABATACEPT
     Dosage: 120 MG, QW
     Route: 058
  494. ORENCIA [Suspect]
     Active Substance: ABATACEPT
     Route: 065
  495. ORENCIA [Suspect]
     Active Substance: ABATACEPT
     Dosage: UNK, QD
     Route: 017
  496. ORENCIA [Suspect]
     Active Substance: ABATACEPT
     Route: 042
  497. ORENCIA [Suspect]
     Active Substance: ABATACEPT
     Route: 042
  498. ORENCIA [Suspect]
     Active Substance: ABATACEPT
     Route: 058
  499. ORENCIA [Suspect]
     Active Substance: ABATACEPT
     Dosage: UNK, QD
     Route: 058
  500. ORENCIA [Suspect]
     Active Substance: ABATACEPT
     Route: 065
  501. ORENCIA [Suspect]
     Active Substance: ABATACEPT
     Route: 058
  502. ORENCIA [Suspect]
     Active Substance: ABATACEPT
     Route: 058
  503. ORENCIA [Suspect]
     Active Substance: ABATACEPT
     Route: 058
  504. ORENCIA [Suspect]
     Active Substance: ABATACEPT
     Route: 065
  505. ORENCIA [Suspect]
     Active Substance: ABATACEPT
     Route: 041
  506. ORENCIA [Suspect]
     Active Substance: ABATACEPT
     Route: 058
  507. ORENCIA [Suspect]
     Active Substance: ABATACEPT
     Route: 048
  508. ORENCIA [Suspect]
     Active Substance: ABATACEPT
     Dosage: 3 MG (1 EVERY 5 DAYS)
     Route: 065
  509. CETIRIZINE HYDROCHLORIDE [Suspect]
     Active Substance: CETIRIZINE HYDROCHLORIDE
     Indication: Product used for unknown indication
     Route: 065
  510. CETIRIZINE HYDROCHLORIDE [Suspect]
     Active Substance: CETIRIZINE HYDROCHLORIDE
     Indication: Rheumatoid arthritis
     Route: 065
  511. CETIRIZINE HYDROCHLORIDE [Suspect]
     Active Substance: CETIRIZINE HYDROCHLORIDE
     Route: 016
  512. CHLORAPREP [Suspect]
     Active Substance: CHLORHEXIDINE GLUCONATE\ISOPROPYL ALCOHOL
     Indication: Product used for unknown indication
     Route: 061
  513. CHLORAPREP [Suspect]
     Active Substance: CHLORHEXIDINE GLUCONATE\ISOPROPYL ALCOHOL
     Route: 065
  514. CHLORAPREP [Suspect]
     Active Substance: CHLORHEXIDINE GLUCONATE\ISOPROPYL ALCOHOL
     Route: 048
  515. CHLORAPREP [Suspect]
     Active Substance: CHLORHEXIDINE GLUCONATE\ISOPROPYL ALCOHOL
     Route: 061
  516. DOXYCYCLINE HYCLATE [Suspect]
     Active Substance: DOXYCYCLINE HYCLATE
     Indication: Product used for unknown indication
     Route: 065
  517. ASACOL [Suspect]
     Active Substance: MESALAMINE
     Indication: Product used for unknown indication
     Route: 065
  518. ENBREL [Suspect]
     Active Substance: ETANERCEPT
     Indication: Psoriatic arthropathy
     Dosage: 20 MG, QD
     Route: 058
  519. ENBREL [Suspect]
     Active Substance: ETANERCEPT
     Indication: Rheumatoid arthritis
     Route: 058
  520. ENBREL [Suspect]
     Active Substance: ETANERCEPT
     Indication: Product used for unknown indication
     Route: 065
  521. ENBREL [Suspect]
     Active Substance: ETANERCEPT
     Route: 065
  522. ENBREL [Suspect]
     Active Substance: ETANERCEPT
     Dosage: 20 MG
     Route: 058
  523. ENBREL [Suspect]
     Active Substance: ETANERCEPT
     Route: 065
  524. ENBREL [Suspect]
     Active Substance: ETANERCEPT
     Dosage: 50 MG, WE (50 MG, QW)
     Route: 058
  525. ENBREL [Suspect]
     Active Substance: ETANERCEPT
     Route: 058
  526. ENBREL [Suspect]
     Active Substance: ETANERCEPT
     Route: 058
  527. XELJANZ [Suspect]
     Active Substance: TOFACITINIB CITRATE
     Indication: Product used for unknown indication
     Route: 065
  528. XELJANZ [Suspect]
     Active Substance: TOFACITINIB CITRATE
     Indication: Rheumatoid arthritis
     Route: 048
  529. XELJANZ [Suspect]
     Active Substance: TOFACITINIB CITRATE
     Route: 065
  530. XELJANZ [Suspect]
     Active Substance: TOFACITINIB CITRATE
     Route: 065
  531. XELJANZ [Suspect]
     Active Substance: TOFACITINIB CITRATE
     Route: 065
  532. XELJANZ [Suspect]
     Active Substance: TOFACITINIB CITRATE
     Route: 048
  533. XELJANZ [Suspect]
     Active Substance: TOFACITINIB CITRATE
     Route: 065
  534. XELJANZ [Suspect]
     Active Substance: TOFACITINIB CITRATE
     Route: 065
  535. XELJANZ [Suspect]
     Active Substance: TOFACITINIB CITRATE
     Route: 065
  536. XELJANZ [Suspect]
     Active Substance: TOFACITINIB CITRATE
     Route: 065
  537. OXYCODONE TEREPHTHALATE [Suspect]
     Active Substance: OXYCODONE TEREPHTHALATE
     Indication: Product used for unknown indication
     Route: 065
  538. INFLIXIMAB [Suspect]
     Active Substance: INFLIXIMAB
     Indication: Rheumatoid arthritis
     Route: 042
  539. INFLIXIMAB [Suspect]
     Active Substance: INFLIXIMAB
     Route: 042
  540. INFLIXIMAB [Suspect]
     Active Substance: INFLIXIMAB
     Route: 042
  541. INFLIXIMAB [Suspect]
     Active Substance: INFLIXIMAB
     Route: 065
  542. INFLIXIMAB [Suspect]
     Active Substance: INFLIXIMAB
     Route: 065
  543. LEFLUNOMIDE [Suspect]
     Active Substance: LEFLUNOMIDE
     Indication: Rheumatoid arthritis
     Route: 048
  544. LEFLUNOMIDE [Suspect]
     Active Substance: LEFLUNOMIDE
     Indication: Product used for unknown indication
     Route: 048
  545. LEFLUNOMIDE [Suspect]
     Active Substance: LEFLUNOMIDE
     Route: 048
  546. LEFLUNOMIDE [Suspect]
     Active Substance: LEFLUNOMIDE
     Route: 058
  547. LEFLUNOMIDE [Suspect]
     Active Substance: LEFLUNOMIDE
     Route: 048
  548. LEFLUNOMIDE [Suspect]
     Active Substance: LEFLUNOMIDE
     Route: 065
  549. ERELZI [Suspect]
     Active Substance: ETANERCEPT-SZZS
     Indication: Rheumatoid arthritis
     Dosage: 50 MG, WE (50 MG, QW)
     Route: 058
  550. ERELZI [Suspect]
     Active Substance: ETANERCEPT-SZZS
     Indication: Product used for unknown indication
     Route: 058
  551. ERELZI [Suspect]
     Active Substance: ETANERCEPT-SZZS
     Route: 065
  552. ERELZI [Suspect]
     Active Substance: ETANERCEPT-SZZS
     Route: 065
  553. ERELZI [Suspect]
     Active Substance: ETANERCEPT-SZZS
     Dosage: 50 MG, WE (50 MG, QW)
     Route: 065
  554. CELECOXIB [Suspect]
     Active Substance: CELECOXIB
     Indication: Product used for unknown indication
     Route: 065
  555. CELECOXIB [Suspect]
     Active Substance: CELECOXIB
     Indication: Rheumatoid arthritis
     Dosage: 1 DF, QD (1 DOSAGE FORM, QD)
     Route: 065
  556. CERTOLIZUMAB PEGOL [Suspect]
     Active Substance: CERTOLIZUMAB PEGOL
     Indication: Product used for unknown indication
     Route: 065
  557. CERTOLIZUMAB PEGOL [Suspect]
     Active Substance: CERTOLIZUMAB PEGOL
     Route: 065
  558. LEFLUNOMIDE [Suspect]
     Active Substance: LEFLUNOMIDE
     Indication: Rheumatoid arthritis
     Route: 048
  559. LEFLUNOMIDE [Suspect]
     Active Substance: LEFLUNOMIDE
     Route: 048
  560. LEFLUNOMIDE [Suspect]
     Active Substance: LEFLUNOMIDE
     Route: 065
  561. LEFLUNOMIDE [Suspect]
     Active Substance: LEFLUNOMIDE
     Route: 048
  562. CORTISONE ACETATE [Suspect]
     Active Substance: CORTISONE ACETATE
     Indication: Product used for unknown indication
     Route: 050
  563. CORTISONE ACETATE [Suspect]
     Active Substance: CORTISONE ACETATE
     Indication: Rheumatoid arthritis
     Route: 048
  564. CORTISONE ACETATE [Suspect]
     Active Substance: CORTISONE ACETATE
     Route: 048
  565. CORTISONE ACETATE [Suspect]
     Active Substance: CORTISONE ACETATE
     Route: 061
  566. CORTISONE ACETATE [Suspect]
     Active Substance: CORTISONE ACETATE
     Route: 061
  567. CORTISONE ACETATE [Suspect]
     Active Substance: CORTISONE ACETATE
     Route: 065
  568. ALENDRONIC ACID [Suspect]
     Active Substance: ALENDRONIC ACID
     Indication: Rheumatoid arthritis
     Route: 065
  569. ALENDRONIC ACID [Suspect]
     Active Substance: ALENDRONIC ACID
     Route: 016
  570. ALENDRONIC ACID [Suspect]
     Active Substance: ALENDRONIC ACID
     Route: 048
  571. ALENDRONIC ACID [Suspect]
     Active Substance: ALENDRONIC ACID
     Route: 065
  572. ALENDRONIC ACID [Suspect]
     Active Substance: ALENDRONIC ACID
     Route: 065
  573. SULFAMETHOXAZOLE AND TRIMETHOPRIM [Suspect]
     Active Substance: SULFAMETHOXAZOLE\TRIMETHOPRIM
     Indication: Product used for unknown indication
     Route: 065
  574. SULFAMETHOXAZOLE AND TRIMETHOPRIM [Suspect]
     Active Substance: SULFAMETHOXAZOLE\TRIMETHOPRIM
     Route: 067
  575. SULFAMETHOXAZOLE AND TRIMETHOPRIM [Suspect]
     Active Substance: SULFAMETHOXAZOLE\TRIMETHOPRIM
     Route: 065
  576. SULFAMETHOXAZOLE AND TRIMETHOPRIM [Suspect]
     Active Substance: SULFAMETHOXAZOLE\TRIMETHOPRIM
     Route: 065
  577. OTEZLA [Suspect]
     Active Substance: APREMILAST
     Indication: Product used for unknown indication
     Dosage: 6 MG, QD (3 MG, BID)
     Route: 048
  578. OTEZLA [Suspect]
     Active Substance: APREMILAST
     Dosage: 6 MG, QD (3 MG, BID)
     Route: 065
  579. GOLIMUMAB [Suspect]
     Active Substance: GOLIMUMAB
     Indication: Rheumatoid arthritis
     Route: 058
  580. GOLIMUMAB [Suspect]
     Active Substance: GOLIMUMAB
     Route: 065
  581. HYDROXYCHLOROQUINE SULFATE [Suspect]
     Active Substance: HYDROXYCHLOROQUINE SULFATE
     Indication: Rheumatoid arthritis
     Route: 048
  582. HYDROXYCHLOROQUINE SULFATE [Suspect]
     Active Substance: HYDROXYCHLOROQUINE SULFATE
     Indication: Product used for unknown indication
     Route: 065
  583. HYDROXYCHLOROQUINE SULFATE [Suspect]
     Active Substance: HYDROXYCHLOROQUINE SULFATE
     Route: 048
  584. HYDROXYCHLOROQUINE SULFATE [Suspect]
     Active Substance: HYDROXYCHLOROQUINE SULFATE
     Dosage: 40 MG, QD
     Route: 065
  585. HYDROXYCHLOROQUINE SULFATE [Suspect]
     Active Substance: HYDROXYCHLOROQUINE SULFATE
     Route: 048
  586. HYDROXYCHLOROQUINE SULFATE [Suspect]
     Active Substance: HYDROXYCHLOROQUINE SULFATE
     Route: 065
  587. HYDROXYCHLOROQUINE SULFATE [Suspect]
     Active Substance: HYDROXYCHLOROQUINE SULFATE
     Route: 048
  588. HYDROXYCHLOROQUINE SULFATE [Suspect]
     Active Substance: HYDROXYCHLOROQUINE SULFATE
     Route: 048
  589. COD LIVER OIL [Suspect]
     Active Substance: COD LIVER OIL
     Indication: Product used for unknown indication
     Route: 065
  590. DICLOFENAC SODIUM [Suspect]
     Active Substance: DICLOFENAC SODIUM
     Indication: Product used for unknown indication
     Route: 048
  591. DICLOFENAC SODIUM [Suspect]
     Active Substance: DICLOFENAC SODIUM
  592. DICLOFENAC SODIUM [Suspect]
     Active Substance: DICLOFENAC SODIUM
     Route: 065
  593. DICLOFENAC SODIUM [Suspect]
     Active Substance: DICLOFENAC SODIUM
     Route: 065
  594. PERIOGARD [Suspect]
     Active Substance: CHLORHEXIDINE GLUCONATE
     Indication: Product used for unknown indication
     Route: 065
  595. PERIOGARD [Suspect]
     Active Substance: CHLORHEXIDINE GLUCONATE
     Route: 002
  596. PERIOGARD [Suspect]
     Active Substance: CHLORHEXIDINE GLUCONATE
     Route: 048
  597. PERIOGARD [Suspect]
     Active Substance: CHLORHEXIDINE GLUCONATE
     Route: 065
  598. PREGABALIN [Suspect]
     Active Substance: PREGABALIN
     Indication: Product used for unknown indication
     Route: 065
  599. PHTHALYLSULFATHIAZOLE [Suspect]
     Active Substance: PHTHALYLSULFATHIAZOLE
     Indication: Rheumatoid arthritis
     Route: 042
  600. PHTHALYLSULFATHIAZOLE [Suspect]
     Active Substance: PHTHALYLSULFATHIAZOLE
     Indication: Product used for unknown indication
     Route: 058
  601. PHTHALYLSULFATHIAZOLE [Suspect]
     Active Substance: PHTHALYLSULFATHIAZOLE
     Dosage: DURATION 365 DAYS; 365 DAYS
     Route: 048
  602. PHTHALYLSULFATHIAZOLE [Suspect]
     Active Substance: PHTHALYLSULFATHIAZOLE
     Route: 048
  603. PHTHALYLSULFATHIAZOLE [Suspect]
     Active Substance: PHTHALYLSULFATHIAZOLE
     Route: 048
  604. PHTHALYLSULFATHIAZOLE [Suspect]
     Active Substance: PHTHALYLSULFATHIAZOLE
     Route: 065
  605. PHTHALYLSULFATHIAZOLE [Suspect]
     Active Substance: PHTHALYLSULFATHIAZOLE
     Dosage: DURATION 365 DAYS; 365 DAYS
     Route: 048
  606. PHTHALYLSULFATHIAZOLE [Suspect]
     Active Substance: PHTHALYLSULFATHIAZOLE
     Route: 016
  607. PHTHALYLSULFATHIAZOLE [Suspect]
     Active Substance: PHTHALYLSULFATHIAZOLE
     Route: 065
  608. PHTHALYLSULFATHIAZOLE [Suspect]
     Active Substance: PHTHALYLSULFATHIAZOLE
     Dosage: DURATION 365 DAYS; 365 DAYS
     Route: 065
  609. PHTHALYLSULFATHIAZOLE [Suspect]
     Active Substance: PHTHALYLSULFATHIAZOLE
     Route: 048
  610. PHTHALYLSULFATHIAZOLE [Suspect]
     Active Substance: PHTHALYLSULFATHIAZOLE
     Dosage: DURATION 365 DAYS; 365 DAYS
     Route: 048
  611. PHTHALYLSULFATHIAZOLE [Suspect]
     Active Substance: PHTHALYLSULFATHIAZOLE
     Route: 048
  612. PHTHALYLSULFATHIAZOLE [Suspect]
     Active Substance: PHTHALYLSULFATHIAZOLE
     Route: 048
  613. CETIRIZINE HYDROCHLORIDE\PSEUDOEPHEDRINE HYDROCHLORIDE [Suspect]
     Active Substance: CETIRIZINE HYDROCHLORIDE\PSEUDOEPHEDRINE HYDROCHLORIDE
     Indication: Product used for unknown indication
     Route: 048
  614. CETIRIZINE HYDROCHLORIDE\PSEUDOEPHEDRINE HYDROCHLORIDE [Suspect]
     Active Substance: CETIRIZINE HYDROCHLORIDE\PSEUDOEPHEDRINE HYDROCHLORIDE
     Indication: Rheumatoid arthritis
     Route: 065
  615. CETIRIZINE HYDROCHLORIDE\PSEUDOEPHEDRINE HYDROCHLORIDE [Suspect]
     Active Substance: CETIRIZINE HYDROCHLORIDE\PSEUDOEPHEDRINE HYDROCHLORIDE
     Route: 065
  616. CETIRIZINE HYDROCHLORIDE\PSEUDOEPHEDRINE HYDROCHLORIDE [Suspect]
     Active Substance: CETIRIZINE HYDROCHLORIDE\PSEUDOEPHEDRINE HYDROCHLORIDE
     Route: 065
  617. CETIRIZINE HYDROCHLORIDE\PSEUDOEPHEDRINE HYDROCHLORIDE [Suspect]
     Active Substance: CETIRIZINE HYDROCHLORIDE\PSEUDOEPHEDRINE HYDROCHLORIDE
     Route: 065
  618. SIMPONI [Suspect]
     Active Substance: GOLIMUMAB
     Indication: Product used for unknown indication
     Route: 058
  619. SIMPONI [Suspect]
     Active Substance: GOLIMUMAB
     Indication: Rheumatoid arthritis
     Route: 042
  620. SIMPONI [Suspect]
     Active Substance: GOLIMUMAB
     Route: 052
  621. SIMPONI [Suspect]
     Active Substance: GOLIMUMAB
     Route: 065
  622. SIMPONI [Suspect]
     Active Substance: GOLIMUMAB
     Route: 058
  623. SULFAMETHOXAZOLE [Suspect]
     Active Substance: SULFAMETHOXAZOLE
     Indication: Rheumatoid arthritis
     Route: 065
  624. CALTRATE [Suspect]
     Active Substance: CALCIUM CARBONATE
     Indication: Product used for unknown indication
     Route: 065
  625. ASACOL [Suspect]
     Active Substance: MESALAMINE
     Indication: Product used for unknown indication
     Route: 065
  626. CELECOXIB [Suspect]
     Active Substance: CELECOXIB
     Indication: Product used for unknown indication
  627. CELECOXIB [Suspect]
     Active Substance: CELECOXIB
     Route: 065
  628. IODINE [Suspect]
     Active Substance: IODINE
     Indication: Product used for unknown indication
  629. PANADOL [Suspect]
     Active Substance: ACETAMINOPHEN
     Indication: Rheumatoid arthritis
     Route: 065
  630. PANADOL [Suspect]
     Active Substance: ACETAMINOPHEN
     Indication: Pyrexia
     Route: 065
  631. PANADOL [Suspect]
     Active Substance: ACETAMINOPHEN
     Indication: Pain
     Route: 065
  632. DICLOFENAC SODIUM [Suspect]
     Active Substance: DICLOFENAC SODIUM
     Indication: Product used for unknown indication
     Route: 065
  633. DICLOFENAC SODIUM [Suspect]
     Active Substance: DICLOFENAC SODIUM
     Route: 065
  634. DICLOFENAC SODIUM [Suspect]
     Active Substance: DICLOFENAC SODIUM
     Route: 048
  635. DICLOFENAC SODIUM [Suspect]
     Active Substance: DICLOFENAC SODIUM
     Indication: Product used for unknown indication
     Route: 065
  636. DICLOFENAC SODIUM [Suspect]
     Active Substance: DICLOFENAC SODIUM
     Route: 065
  637. DICLOFENAC SODIUM [Suspect]
     Active Substance: DICLOFENAC SODIUM
     Indication: Rheumatoid arthritis
     Route: 047
  638. DICLOFENAC SODIUM [Suspect]
     Active Substance: DICLOFENAC SODIUM
     Indication: Inflammation
     Route: 065
  639. DICLOFENAC SODIUM [Suspect]
     Active Substance: DICLOFENAC SODIUM
     Route: 048
  640. DICLOFENAC SODIUM [Suspect]
     Active Substance: DICLOFENAC SODIUM
     Route: 048
  641. DICLOFENAC SODIUM [Suspect]
     Active Substance: DICLOFENAC SODIUM
     Route: 065
  642. DICLOFENAC SODIUM [Suspect]
     Active Substance: DICLOFENAC SODIUM
     Route: 065
  643. DICLOFENAC SODIUM [Suspect]
     Active Substance: DICLOFENAC SODIUM
     Route: 048
  644. DICLOFENAC SODIUM [Suspect]
     Active Substance: DICLOFENAC SODIUM
     Route: 065
  645. DICLOFENAC SODIUM [Suspect]
     Active Substance: DICLOFENAC SODIUM
     Route: 065
  646. DICLOFENAC SODIUM [Suspect]
     Active Substance: DICLOFENAC SODIUM
     Route: 065
  647. DICLOFENAC SODIUM [Suspect]
     Active Substance: DICLOFENAC SODIUM
     Route: 065
  648. DICLOFENAC SODIUM [Suspect]
     Active Substance: DICLOFENAC SODIUM
     Route: 065
  649. DICLOFENAC SODIUM [Suspect]
     Active Substance: DICLOFENAC SODIUM
     Route: 065
  650. DICLOFENAC SODIUM [Suspect]
     Active Substance: DICLOFENAC SODIUM
     Route: 058
  651. DICLOFENAC SODIUM [Suspect]
     Active Substance: DICLOFENAC SODIUM
     Route: 065
  652. DICLOFENAC SODIUM [Suspect]
     Active Substance: DICLOFENAC SODIUM
     Route: 048
  653. DICLOFENAC SODIUM [Suspect]
     Active Substance: DICLOFENAC SODIUM
     Route: 065

REACTIONS (63)
  - Hepatic cirrhosis [Fatal]
  - Crohn^s disease [Fatal]
  - Drug-induced liver injury [Fatal]
  - Ear infection [Fatal]
  - Exostosis [Fatal]
  - Foot deformity [Fatal]
  - Joint dislocation [Fatal]
  - Laryngitis [Fatal]
  - Lupus-like syndrome [Fatal]
  - Off label use [Fatal]
  - Hypercholesterolaemia [Fatal]
  - Fibromyalgia [Fatal]
  - Intentional product use issue [Fatal]
  - Bursitis [Fatal]
  - Hypoaesthesia [Fatal]
  - Lower respiratory tract infection [Fatal]
  - Nasopharyngitis [Fatal]
  - X-ray abnormal [Fatal]
  - Alopecia [Fatal]
  - C-reactive protein increased [Fatal]
  - Blister [Fatal]
  - Blood cholesterol increased [Fatal]
  - Decreased appetite [Fatal]
  - Autoimmune disorder [Fatal]
  - Obesity [Fatal]
  - Muscle spasms [Fatal]
  - Anti-cyclic citrullinated peptide antibody [Fatal]
  - Impaired healing [Fatal]
  - Headache [Fatal]
  - Asthenia [Fatal]
  - Glossodynia [Fatal]
  - Confusional state [Fatal]
  - Asthma [Fatal]
  - C-reactive protein abnormal [Fatal]
  - Gastrointestinal disorder [Fatal]
  - Muscle injury [Fatal]
  - Contusion [Fatal]
  - Deep vein thrombosis postoperative [Fatal]
  - Oedema peripheral [Fatal]
  - Chest pain [Fatal]
  - Musculoskeletal stiffness [Fatal]
  - Abdominal pain [Fatal]
  - Drug intolerance [Fatal]
  - Liver injury [Fatal]
  - Condition aggravated [Fatal]
  - Pain in extremity [Fatal]
  - Folliculitis [Fatal]
  - Hypersensitivity [Fatal]
  - Joint swelling [Fatal]
  - Bone erosion [Fatal]
  - Lung disorder [Fatal]
  - Facet joint syndrome [Fatal]
  - Underdose [Fatal]
  - Drug hypersensitivity [Fatal]
  - Lower limb fracture [Fatal]
  - Helicobacter infection [Fatal]
  - Injury [Fatal]
  - Anxiety [Fatal]
  - Musculoskeletal pain [Fatal]
  - Fatigue [Fatal]
  - Gait inability [Fatal]
  - Hand deformity [Fatal]
  - Night sweats [Fatal]
